FAERS Safety Report 5277382-4 (Version None)
Quarter: 2007Q1

REPORT INFORMATION
  Report Type: 
  Country: None (occurrence: None)
  Receive Date: 20061213
  Receipt Date: 20060407
  Transmission Date: 20070707
  Serious: No
  Sender: FDA-Public Use
  Company Number: 2005UW02227

PATIENT
  Age: 51 Year
  Sex: Female

DRUGS (5)
  1. SEROQUEL [Suspect]
     Indication: ANXIETY
     Dosage: 600 MG DAILY PO
     Route: 048
     Dates: start: 20041102, end: 20050119
  2. SEROQUEL [Suspect]
     Indication: MAJOR DEPRESSION
     Dosage: 600 MG DAILY PO
     Route: 048
     Dates: start: 20041102, end: 20050119
  3. WELLBUTRIN [Concomitant]
  4. LORAZEPAM [Concomitant]
  5. ZYPREXA [Concomitant]

REACTIONS (1)
  - NEUTROPENIA [None]
